FAERS Safety Report 7888182-0 (Version None)
Quarter: 2011Q4

REPORT INFORMATION
  Report Type: 
  Country: None (occurrence: None)
  Receive Date: 20111102
  Receipt Date: 20111102
  Transmission Date: 20120403
  Serious: Yes (Hospitalization)
  Sender: FDA-Public Use
  Company Number: None

PATIENT
  Sex: Male
  Weight: 85 kg

DRUGS (1)
  1. CISPLATIN [Suspect]
     Dosage: 208 MG
     Dates: end: 20080818

REACTIONS (7)
  - PURULENT DISCHARGE [None]
  - CATHETER SITE INFECTION [None]
  - CATHETER SITE PAIN [None]
  - DIZZINESS [None]
  - PYREXIA [None]
  - FUNCTIONAL GASTROINTESTINAL DISORDER [None]
  - VOMITING [None]
